FAERS Safety Report 7798864-7 (Version None)
Quarter: 2011Q4

REPORT INFORMATION
  Report Type: 
  Country: None (occurrence: None)
  Receive Date: 20111006
  Receipt Date: 20110929
  Transmission Date: 20120403
  Serious: Yes (Hospitalization, Other)
  Sender: FDA-Public Use
  Company Number: JP-JNJFOC-20091006194

PATIENT
  Sex: Female
  Weight: 59 kg

DRUGS (3)
  1. DOXORUBICIN HCL [Suspect]
     Indication: OVARIAN CANCER RECURRENT
     Route: 042
     Dates: start: 20090821, end: 20090821
  2. DOXORUBICIN HCL [Suspect]
     Route: 042
     Dates: start: 20090724, end: 20090724
  3. DOXORUBICIN HCL [Suspect]
     Route: 042
     Dates: start: 20090917, end: 20090917

REACTIONS (1)
  - INTERSTITIAL LUNG DISEASE [None]
